FAERS Safety Report 6130263-6 (Version None)
Quarter: 2009Q1

REPORT INFORMATION
  Report Type: 
  Country: None (occurrence: None)
  Receive Date: 20090324
  Receipt Date: 20090317
  Transmission Date: 20090719
  Serious: Yes (Hospitalization, Other)
  Sender: FDA-Public Use
  Company Number: PHHY2008IT28434

PATIENT
  Sex: Female

DRUGS (13)
  1. METHERGINE [Suspect]
     Indication: CAESAREAN SECTION
     Dosage: 0.6 MG
     Route: 030
     Dates: start: 20080721, end: 20080721
  2. METHERGINE [Suspect]
     Route: 042
  3. ATROPINE SULFATE [Suspect]
     Dosage: UNK
     Route: 042
     Dates: start: 20080721, end: 20081022
  4. SYNTOCINON [Suspect]
     Dosage: 15 IU
     Route: 042
     Dates: start: 20080721, end: 20080721
  5. DEXTROSE 5% [Suspect]
     Dosage: 1L
     Dates: start: 20080721, end: 20080721
  6. DEXTROSE 5% [Suspect]
     Route: 042
  7. SODIUM CHLORIDE [Suspect]
     Dosage: 2L
     Route: 042
     Dates: start: 20080721, end: 20080721
  8. BENTELAN [Suspect]
     Indication: ANAESTHESIA
     Dosage: 4 MG
     Route: 042
     Dates: start: 20080721, end: 20080721
  9. BUPIVACAINE [Suspect]
     Indication: SPINAL ANAESTHESIA
     Dosage: 1 POSOLOGIC UNIT
     Dates: start: 20080721, end: 20080721
  10. EMAGEL [Suspect]
     Dosage: 2L
     Route: 042
     Dates: start: 20080721, end: 20080721
  11. EMAGEL [Suspect]
     Dosage: 500 ML
     Route: 042
  12. AMPLITAL [Concomitant]
     Dosage: 1 GM
     Route: 042
  13. TRANEX [Concomitant]
     Dosage: 2 VIALS
     Route: 042

REACTIONS (5)
  - CARDIO-RESPIRATORY DISTRESS [None]
  - DISSEMINATED INTRAVASCULAR COAGULATION [None]
  - HYSTERECTOMY [None]
  - SURGICAL PROCEDURE REPEATED [None]
  - SYNCOPE [None]
